FAERS Safety Report 18071052 (Version 1)
Quarter: 2020Q3

REPORT INFORMATION
  Report Type: Spontaneous
  Country: US (occurrence: US)
  Receive Date: 20200724
  Receipt Date: 20200724
  Transmission Date: 20201103
  Serious: Yes (Death)
  Sender: FDA-Public Use
  Company Number: None

PATIENT
  Age: 67 Year
  Sex: Female
  Weight: 102.7 kg

DRUGS (10)
  1. REMDESIVIR. [Suspect]
     Active Substance: REMDESIVIR
     Indication: COVID-19 PNEUMONIA
     Route: 042
     Dates: start: 20200618, end: 20200622
  2. DEXAMETHASONE 6 MG IV DAILY [Concomitant]
     Dates: start: 20200713, end: 20200718
  3. TOCILIZUMAB 800 MG X 1 AT OTHER HOSP [Concomitant]
     Dates: start: 20200616, end: 20200616
  4. AMIODARONE 200 MG PO Q12HR [Concomitant]
     Dates: start: 20200715, end: 20200718
  5. CONVALESCENT PLASMA X 2 UNITS AT OTHER HOSP [Concomitant]
     Dates: start: 20200613, end: 20200613
  6. DEXAMETHASONE 10 MG IV ONCE DAILY [Concomitant]
     Dates: start: 20200618, end: 20200622
  7. ENOXAPARIN 100 MG SQ Q12HRS [Concomitant]
     Dates: start: 20200618, end: 20200718
  8. FAMOTODINE 20 MG IV BID [Concomitant]
     Dates: start: 20200618, end: 20200718
  9. AZITHROMYCIN 500 MG FEED TUBE DAILY [Concomitant]
     Dates: start: 20200618, end: 20200624
  10. LANTUS UP TO 20 UNTIS SQ BID [Concomitant]
     Dates: start: 20200617, end: 20200718

REACTIONS (15)
  - Cardiac arrest [None]
  - Blood glucose increased [None]
  - Blood chloride increased [None]
  - Blood phosphorus increased [None]
  - Red blood cell count decreased [None]
  - Blood creatinine increased [None]
  - Carbon dioxide decreased [None]
  - Blood magnesium increased [None]
  - White blood cell count increased [None]
  - SARS-CoV-2 test positive [None]
  - Blood urea increased [None]
  - Glomerular filtration rate increased [None]
  - Blood calcium decreased [None]
  - Blood potassium increased [None]
  - Haematocrit decreased [None]

NARRATIVE: CASE EVENT DATE: 20200718
